FAERS Safety Report 5832465-2 (Version None)
Quarter: 2008Q3

REPORT INFORMATION
  Report Type: 
  Country: None (occurrence: None)
  Receive Date: 20080731
  Receipt Date: 20080728
  Transmission Date: 20090109
  Serious: Yes (Hospitalization)
  Sender: FDA-Public Use
  Company Number: 2008SP013359

PATIENT
  Sex: Male

DRUGS (11)
  1. VIRAFERONPEG (PEGINTEFERON ALF-2B) (PEGINTERFERON ALFA-2B) [Suspect]
     Indication: HEPATITIS C
     Dosage: 1 DF; QW; SC
     Route: 058
     Dates: start: 20080424
  2. REBETOL [Suspect]
     Indication: HEPATITIS C
     Dosage: 600 MG; QD; PO
     Route: 048
     Dates: start: 20080613
  3. SUBUTEX [Suspect]
     Dosage: 2 MG; QID
     Dates: start: 20080627
  4. MYCOSTATINE (CON.) [Concomitant]
  5. IMOVANE (CON.) [Concomitant]
  6. SERTRALINE (CON.) [Concomitant]
  7. ARIPIPRAZOLE (CON.) [Concomitant]
  8. ZYPREXA (CON.) [Concomitant]
  9. ATARAX (CON.) [Concomitant]
  10. HEXTRIL (CON.) [Concomitant]
  11. DAFALGAN (CON.) [Concomitant]

REACTIONS (6)
  - DELIRIUM [None]
  - DELUSION [None]
  - HYPERHIDROSIS [None]
  - MEDICATION ERROR [None]
  - PYREXIA [None]
  - WEIGHT DECREASED [None]
